FAERS Safety Report 6243386-8 (Version None)
Quarter: 2009Q2

REPORT INFORMATION
  Report Type: 
  Country: None (occurrence: None)
  Receive Date: 20090622
  Receipt Date: 20090622
  Transmission Date: 20091009
  Serious: Yes (Other)
  Sender: FDA-Public Use
  Company Number: None

PATIENT
  Age: 40 Year
  Sex: Female
  Weight: 48.9885 kg

DRUGS (1)
  1. ZICAM COLD REMEDY SWABS ZINCUM GLUCONICUM ZICAM 2X [Suspect]
     Indication: NASOPHARYNGITIS
     Dosage: 1 SWAB 2-3 TX FOR 5 DAYS
     Route: 045
     Dates: start: 20090508, end: 20090512

REACTIONS (2)
  - AGEUSIA [None]
  - ANOSMIA [None]
